FAERS Safety Report 6715071-7 (Version None)
Quarter: 2010Q2

REPORT INFORMATION
  Report Type: 
  Country: None (occurrence: None)
  Receive Date: 20100506
  Receipt Date: 20100506
  Transmission Date: 20101027
  Serious: Yes (Hospitalization)
  Sender: FDA-Public Use
  Company Number: None

PATIENT
  Age: 63 Year
  Sex: Male
  Weight: 54.4316 kg

DRUGS (9)
  1. OLANZAPINE [Suspect]
     Indication: BIPOLAR DISORDER
     Dosage: 30MG PO DAILY (OUT PT DOSE)
     Route: 048
  2. OLANZAPINE [Suspect]
     Indication: SCHIZOPHRENIA
     Dosage: 30MG PO DAILY (OUT PT DOSE)
     Route: 048
  3. AMLODIPINE BESYLATE [Concomitant]
  4. LISINOPRIL [Concomitant]
  5. LEVOFLOXACIN [Concomitant]
  6. OMEPRAZOLE [Concomitant]
  7. OLANZAPINE [Concomitant]
  8. LORAZEPAM [Concomitant]
  9. TAMSULOSIN HCL [Concomitant]

REACTIONS (4)
  - CATATONIA [None]
  - DYSTONIA [None]
  - MENTAL STATUS CHANGES [None]
  - URINARY TRACT INFECTION [None]
